FAERS Safety Report 20066425 (Version 2)
Quarter: 2022Q1

REPORT INFORMATION
  Report Type: Report from Study
  Country: US (occurrence: US)
  Receive Date: 20211115
  Receipt Date: 20220206
  Transmission Date: 20220423
  Serious: No
  Sender: FDA-Public Use
  Company Number: US-NOVARTISTESTPH-NVSC2021US259415

PATIENT
  Sex: Female

DRUGS (1)
  1. COSENTYX [Suspect]
     Active Substance: SECUKINUMAB
     Indication: Ankylosing spondylitis
     Dosage: 150 MG (BENEATH THE SKIN, USUALLY VIA INJECTION), WEEK 0, 1, 2, 3, 4, 5 AND EVERY 4 WEEKS THEREAFTER
     Route: 058

REACTIONS (3)
  - Initial insomnia [Unknown]
  - Pain [Unknown]
  - Nervousness [Unknown]
